FAERS Safety Report 20175840 (Version 1)
Quarter: 2021Q4

REPORT INFORMATION
  Report Type: Spontaneous
  Country: US (occurrence: None)
  Receive Date: 20211210
  Receipt Date: 20211210
  Transmission Date: 20220303
  Serious: No
  Sender: FDA-Public Use
  Company Number: None

PATIENT
  Age: 13 Year
  Sex: Male
  Weight: 65.7 kg

DRUGS (1)
  1. REGEN-COV [Suspect]
     Active Substance: CASIRIVIMAB\IMDEVIMAB
     Dosage: OTHER FREQUENCY : ONCE;?
     Route: 042

REACTIONS (5)
  - Ocular hyperaemia [None]
  - Lacrimation increased [None]
  - Sneezing [None]
  - Rhinorrhoea [None]
  - Swelling face [None]

NARRATIVE: CASE EVENT DATE: 20211006
